FAERS Safety Report 13260757 (Version 2)
Quarter: 2017Q1

REPORT INFORMATION
  Report Type: Report from Study
  Country: US (occurrence: US)
  Receive Date: 20170222
  Receipt Date: 20170310
  Transmission Date: 20170428
  Serious: Yes (Other)
  Sender: FDA-Public Use
  Company Number: US-JAZZ-2017-US-001319

PATIENT
  Sex: Female

DRUGS (48)
  1. XYREM [Suspect]
     Active Substance: SODIUM OXYBATE
     Indication: NARCOLEPSY
     Dosage: 2.25 G, BID
     Route: 048
     Dates: start: 201506, end: 2015
  2. NIACIN. [Concomitant]
     Active Substance: NIACIN
  3. ONDANSETRON HCL [Concomitant]
     Active Substance: ONDANSETRON HYDROCHLORIDE
  4. SINGULAIR [Concomitant]
     Active Substance: MONTELUKAST SODIUM
  5. VALIUM [Concomitant]
     Active Substance: DIAZEPAM
  6. VITAMIN D                          /00107901/ [Concomitant]
     Active Substance: ERGOCALCIFEROL
  7. DHEA [Concomitant]
     Active Substance: PRASTERONE
  8. PRAVASTATIN SODIUM. [Concomitant]
     Active Substance: PRAVASTATIN SODIUM
  9. MEDROL [Concomitant]
     Active Substance: METHYLPREDNISOLONE
  10. RESTASIS [Concomitant]
     Active Substance: CYCLOSPORINE
  11. RITALIN [Concomitant]
     Active Substance: METHYLPHENIDATE HYDROCHLORIDE
  12. TRAZODONE [Concomitant]
     Active Substance: TRAZODONE HYDROCHLORIDE
  13. VENTOLIN HFA [Concomitant]
     Active Substance: ALBUTEROL SULFATE
  14. NADOLOL. [Concomitant]
     Active Substance: NADOLOL
  15. NORVASC [Concomitant]
     Active Substance: AMLODIPINE BESYLATE
  16. RITUXIMAB [Concomitant]
     Active Substance: RITUXIMAB
  17. ZYRTEC [Concomitant]
     Active Substance: CETIRIZINE HYDROCHLORIDE
  18. XYREM [Suspect]
     Active Substance: SODIUM OXYBATE
     Dosage: DOSE ADJUSTMENT
     Route: 048
     Dates: start: 2015, end: 2015
  19. ADDERALL [Concomitant]
     Active Substance: AMPHETAMINE ASPARTATE\AMPHETAMINE SULFATE\DEXTROAMPHETAMINE SACCHARATE\DEXTROAMPHETAMINE SULFATE
  20. PROMETHAZINE [Concomitant]
     Active Substance: PROMETHAZINE\PROMETHAZINE HYDROCHLORIDE
  21. ALEVE [Concomitant]
     Active Substance: NAPROXEN SODIUM
  22. BENADRYL ALLERGY [Concomitant]
     Active Substance: DIPHENHYDRAMINE HYDROCHLORIDE
  23. DYAZIDE [Concomitant]
     Active Substance: HYDROCHLOROTHIAZIDE\TRIAMTERENE
  24. FOLIC ACID. [Concomitant]
     Active Substance: FOLIC ACID
  25. GABA [Concomitant]
     Active Substance: HOMEOPATHICS
  26. PENTAZOCINE HCL AND ACETAMINOPHEN [Concomitant]
     Active Substance: ACETAMINOPHEN\PENTAZOCINE HYDROCHLORIDE
  27. EPIPEN [Concomitant]
     Active Substance: EPINEPHRINE
  28. GLUCOPHAGE [Concomitant]
     Active Substance: METFORMIN HYDROCHLORIDE
  29. TOPAMAX [Concomitant]
     Active Substance: TOPIRAMATE
  30. GLYCOPYRROLATE                     /00196201/ [Concomitant]
     Active Substance: GLYCOPYRRONIUM
  31. DIGESTZEN [Concomitant]
  32. REFRESH OPTIVE ADVANCED            /07868701/ [Concomitant]
  33. IBUPROFEN. [Concomitant]
     Active Substance: IBUPROFEN
  34. LENVIMA [Concomitant]
     Active Substance: LENVATINIB
  35. VALTREX [Concomitant]
     Active Substance: VALACYCLOVIR HYDROCHLORIDE
  36. CLONAZEPAM. [Concomitant]
     Active Substance: CLONAZEPAM
  37. CYMBALTA [Concomitant]
     Active Substance: DULOXETINE HYDROCHLORIDE
  38. EPITOL [Concomitant]
     Active Substance: CARBAMAZEPINE
  39. LIDOCAINE HCL [Concomitant]
     Active Substance: LIDOCAINE HYDROCHLORIDE
  40. XYREM [Suspect]
     Active Substance: SODIUM OXYBATE
     Dosage: 3.75 G, BID
     Dates: start: 201508
  41. LEMTRADA [Concomitant]
     Active Substance: ALEMTUZUMAB
  42. AMPYRA [Concomitant]
     Active Substance: DALFAMPRIDINE
  43. ASMANEX [Concomitant]
     Active Substance: MOMETASONE FUROATE
  44. CYCLOBENZAPRINE                    /00428402/ [Concomitant]
     Active Substance: CYCLOBENZAPRINE
  45. SOLU-MEDROL [Concomitant]
     Active Substance: METHYLPREDNISOLONE SODIUM SUCCINATE
  46. TIZANIDINE HCL [Concomitant]
     Active Substance: TIZANIDINE HYDROCHLORIDE
  47. ORPHENADRINE [Concomitant]
     Active Substance: ORPHENADRINE
  48. PREDNISONE. [Concomitant]
     Active Substance: PREDNISONE

REACTIONS (4)
  - Pre-existing condition improved [Unknown]
  - Disability [Not Recovered/Not Resolved]
  - Central nervous system lesion [Not Recovered/Not Resolved]
  - Memory impairment [Not Recovered/Not Resolved]
